FAERS Safety Report 4708598-0 (Version None)
Quarter: 2005Q3

REPORT INFORMATION
  Report Type: 
  Country: None (occurrence: None)
  Receive Date: 20050706
  Receipt Date: 20050621
  Transmission Date: 20060218
  Serious: Yes (Life-Threatening)
  Sender: FDA-Public Use
  Company Number: 215000

PATIENT
  Age: 43 Year
  Sex: Male
  Weight: 84 kg

DRUGS (9)
  1. RITUXAN(RITUXIMAB) CONC FOR SOLUTION FOR INFUSION [Suspect]
     Indication: GRAFT VERSUS HOST DISEASE
     Dosage: 375 MG/KG, 1/WEEK, INTRAVENOUS
     Route: 042
     Dates: start: 20040430, end: 20040806
  2. FOLATE (FOLATE SODIUM) [Concomitant]
  3. FK506 (TACROLIMUS) [Concomitant]
  4. PREDNISONE TAB [Concomitant]
  5. VITAMIN E [Concomitant]
  6. ACYCLOVIR [Concomitant]
  7. ADVAIR (FLUTICASONE PROPIONATE, SALMETEROL XINAFOATE) [Concomitant]
  8. ALBUTEROL INHALER (ALBUTEROL SULFATE, ALBUTEROL) [Concomitant]
  9. BACTRIM [Concomitant]

REACTIONS (5)
  - CONDITION AGGRAVATED [None]
  - GRAFT VERSUS HOST DISEASE [None]
  - MONOCYTE PERCENTAGE INCREASED [None]
  - NEUTROPENIA [None]
  - VIRAL INFECTION [None]
